FAERS Safety Report 20039708 (Version 5)
Quarter: 2022Q1

REPORT INFORMATION
  Report Type: Spontaneous
  Country: JP (occurrence: JP)
  Receive Date: 20211106
  Receipt Date: 20220129
  Transmission Date: 20220424
  Serious: No
  Sender: FDA-Public Use
  Company Number: JP-UNITED THERAPEUTICS-UNT-2021-021467

PATIENT
  Age: 5 Year
  Sex: Male

DRUGS (14)
  1. UNITUXIN [Suspect]
     Active Substance: DINUTUXIMAB
     Indication: Neuroblastoma
     Dosage: UNK, CYCLICAL (CYCLE 1)
     Route: 041
     Dates: start: 20211018, end: 20211018
  2. UNITUXIN [Suspect]
     Active Substance: DINUTUXIMAB
     Dosage: UNK, CYCLICAL (CYCLE 1)
     Route: 041
     Dates: start: 20211018, end: 20211018
  3. UNITUXIN [Suspect]
     Active Substance: DINUTUXIMAB
     Dosage: UNK, CYCLICAL (CYCLE 1)
     Route: 041
     Dates: start: 20211018, end: 20211018
  4. UNITUXIN [Suspect]
     Active Substance: DINUTUXIMAB
     Dosage: UNK, CYCLICAL (CYCLE 1)
     Route: 041
     Dates: start: 20211020, end: 20211022
  5. UNITUXIN [Suspect]
     Active Substance: DINUTUXIMAB
     Dosage: 8 ML/HR, CYCLICAL (CYCLE 2)
     Route: 041
     Dates: start: 20211129, end: 20211202
  6. UNITUXIN [Suspect]
     Active Substance: DINUTUXIMAB
     Dosage: UNK UNK, CYCLICAL (CYCLE 3)
     Route: 041
     Dates: start: 20220111, end: 20220114
  7. GRANULOCYTE COLONY-STIMULATING FACTOR NOS [Concomitant]
     Active Substance: GRANULOCYTE COLONY-STIMULATING FACTOR NOS
     Indication: Neuroblastoma
     Dosage: UNK
     Route: 065
     Dates: start: 20211015
  8. MORPHINE HYDROCHLORIDE [Concomitant]
     Active Substance: MORPHINE HYDROCHLORIDE
     Indication: Pain
     Dosage: UNK
     Route: 013
  9. MORPHINE HYDROCHLORIDE [Concomitant]
     Active Substance: MORPHINE HYDROCHLORIDE
     Dosage: 33.3 MCG/KG/HR (CYCLE 2)
     Route: 013
     Dates: start: 20211129
  10. FILGRASTIM [Concomitant]
     Active Substance: FILGRASTIM
     Indication: Product used for unknown indication
     Dosage: UNK (CYCLE 1)
     Route: 065
     Dates: start: 20211015
  11. FILGRASTIM [Concomitant]
     Active Substance: FILGRASTIM
     Dosage: UNK (CYCLE 2)
     Route: 065
  12. FILGRASTIM [Concomitant]
     Active Substance: FILGRASTIM
     Dosage: UNK (CYCLE 3)
     Route: 065
  13. TECELEUKIN [Concomitant]
     Active Substance: TECELEUKIN
     Indication: Product used for unknown indication
     Dosage: UNK, CYCLICAL (CYCLE 1)
     Route: 041
  14. TECELEUKIN [Concomitant]
     Active Substance: TECELEUKIN
     Dosage: UNK, CYCLICAL (CYCLE 2)
     Route: 041
     Dates: start: 20211122

REACTIONS (15)
  - Blood growth hormone abnormal [Unknown]
  - Visual acuity reduced [Recovered/Resolved]
  - Abnormal sensation in eye [Recovered/Resolved]
  - Productive cough [Not Recovered/Not Resolved]
  - Ventricular extrasystoles [Recovered/Resolved]
  - C-reactive protein increased [Recovered/Resolved]
  - Procalcitonin increased [Recovered/Resolved]
  - Fibrin D dimer increased [Recovered/Resolved]
  - Abdominal pain [Recovered/Resolved]
  - Wheezing [Recovered/Resolved]
  - Hypoglycaemia [Recovered/Resolved]
  - Pyrexia [Recovered/Resolved]
  - Oxygen saturation decreased [Recovered/Resolved]
  - Aspartate aminotransferase increased [Recovered/Resolved]
  - Alanine aminotransferase increased [Recovered/Resolved]

NARRATIVE: CASE EVENT DATE: 20211001
